FAERS Safety Report 7520533-9 (Version None)
Quarter: 2011Q2

REPORT INFORMATION
  Report Type: 
  Country: None (occurrence: None)
  Receive Date: 20110602
  Receipt Date: 20110519
  Transmission Date: 20111010
  Serious: Yes (Life-Threatening, Other)
  Sender: FDA-Public Use
  Company Number: IT-ELI_LILLY_AND_COMPANY-IT201105005574

PATIENT
  Sex: Male

DRUGS (6)
  1. ATENOLOL [Concomitant]
     Dosage: 50 MG, QD
     Route: 048
  2. ZYPREXA [Suspect]
     Indication: SCHIZOPHRENIA, PARANOID TYPE
     Dosage: 10 MG, QD
     Route: 048
     Dates: start: 20101101
  3. ATENOLOL [Concomitant]
     Dosage: 100 MG, QD
     Route: 048
  4. ZYPREXA [Suspect]
     Dosage: 5 MG, QD
     Route: 048
     Dates: end: 20110501
  5. RISPERDAL [Concomitant]
     Indication: SCHIZOPHRENIA, PARANOID TYPE
     Dosage: 37.5 MG, UNK
     Route: 030
     Dates: start: 20110125, end: 20110408
  6. TRANQUIRIT [Concomitant]
     Dosage: 30 DF, UNK
     Route: 048

REACTIONS (1)
  - ATRIAL FIBRILLATION [None]
